FAERS Safety Report 25983208 (Version 1)
Quarter: 2025Q4

REPORT INFORMATION
  Report Type: Spontaneous
  Country: US (occurrence: US)
  Receive Date: 20251031
  Receipt Date: 20251031
  Transmission Date: 20260117
  Serious: Yes (Death)
  Sender: HIKMA
  Company Number: US-HIKMA PHARMACEUTICALS USA INC.-US-H14001-25-11610

PATIENT
  Sex: Male

DRUGS (3)
  1. LORAZEPAM [Suspect]
     Active Substance: LORAZEPAM
     Indication: Euthanasia
     Dosage: UNKNOWN
     Route: 065
  2. MORPHINE [Suspect]
     Active Substance: MORPHINE
     Indication: Euthanasia
     Dosage: UNKNOWN
     Route: 065
  3. VYNDAMAX [Suspect]
     Active Substance: TAFAMIDIS
     Indication: Product used for unknown indication
     Dosage: UNKNOWN
     Route: 065

REACTIONS (1)
  - Therapeutic product effect delayed [Fatal]
